FAERS Safety Report 10393661 (Version 1)
Quarter: 2014Q3

REPORT INFORMATION
  Report Type: Spontaneous
  Country: IN (occurrence: None)
  Receive Date: 20140815
  Receipt Date: 20140815
  Transmission Date: 20150326
  Serious: Yes (Other)
  Sender: FDA-Public Use
  Company Number: 2014/059

PATIENT
  Age: 16 Month
  Sex: Female

DRUGS (2)
  1. TOPIRAMATE. [Suspect]
     Active Substance: TOPIRAMATE
     Indication: CONVULSION
     Route: 065
  2. VALPROIC ACID. [Suspect]
     Active Substance: VALPROIC ACID
     Indication: CONVULSION
     Route: 065

REACTIONS (6)
  - Asthenia [None]
  - Amino acid metabolism disorder [None]
  - Ammonia increased [None]
  - Blood lactic acid increased [None]
  - Amino acid level increased [None]
  - Blood pyruvic acid increased [None]
